FAERS Safety Report 8045611-X (Version None)
Quarter: 2012Q1

REPORT INFORMATION
  Report Type: 
  Country: None (occurrence: None)
  Receive Date: 20120113
  Receipt Date: 20120105
  Transmission Date: 20120608
  Serious: Yes (Hospitalization, Disabling)
  Sender: FDA-Public Use
  Company Number: CA-MERCK-1106USA00336

PATIENT
  Age: 9 Year
  Sex: Male

DRUGS (2)
  1. SINGULAIR [Suspect]
     Route: 048
     Dates: start: 20100901, end: 20110701
  2. SINGULAIR [Suspect]
     Indication: RHINITIS
     Route: 048
     Dates: start: 20100331, end: 20100901

REACTIONS (22)
  - NAUSEA [None]
  - ABDOMINAL PAIN UPPER [None]
  - WHEEZING [None]
  - PYREXIA [None]
  - GASTROINTESTINAL DISORDER [None]
  - SELF ESTEEM DECREASED [None]
  - HALLUCINATION [None]
  - INSOMNIA [None]
  - SUICIDAL IDEATION [None]
  - ABNORMAL DREAMS [None]
  - DISTURBANCE IN ATTENTION [None]
  - FATIGUE [None]
  - INFLUENZA LIKE ILLNESS [None]
  - CONSTIPATION [None]
  - DIARRHOEA [None]
  - IRRITABILITY [None]
  - AGGRESSION [None]
  - AGITATION [None]
  - DECREASED APPETITE [None]
  - DEPRESSION [None]
  - HEADACHE [None]
  - INAPPROPRIATE SCHEDULE OF DRUG ADMINISTRATION [None]
